FAERS Safety Report 5781428-4 (Version None)
Quarter: 2008Q2

REPORT INFORMATION
  Report Type: 
  Country: None (occurrence: None)
  Receive Date: 20080623
  Receipt Date: 20080612
  Transmission Date: 20081010
  Serious: Yes (Hospitalization, Other)
  Sender: FDA-Public Use
  Company Number: US-BAYER-US-2006-028086

PATIENT
  Age: 17 Year
  Sex: Female
  Weight: 58 kg

DRUGS (1)
  1. MIRENA [Suspect]
     Indication: CONTRACEPTION
     Route: 015
     Dates: start: 20031219, end: 20060927

REACTIONS (24)
  - ABDOMINAL PAIN [None]
  - ACNE [None]
  - AMENORRHOEA [None]
  - COMPLICATION OF DEVICE REMOVAL [None]
  - DYSPAREUNIA [None]
  - DYSURIA [None]
  - FEELING COLD [None]
  - FLANK PAIN [None]
  - GROIN PAIN [None]
  - GYNAECOLOGICAL CHLAMYDIA INFECTION [None]
  - IUCD COMPLICATION [None]
  - MEDICAL DEVICE COMPLICATION [None]
  - MENORRHAGIA [None]
  - METRORRHAGIA [None]
  - NAUSEA [None]
  - PAIN IN EXTREMITY [None]
  - PARAESTHESIA [None]
  - PELVIC INFLAMMATORY DISEASE [None]
  - PELVIC PAIN [None]
  - PROCEDURAL PAIN [None]
  - PYELONEPHRITIS ACUTE [None]
  - PYREXIA [None]
  - TREMOR [None]
  - VAGINAL HAEMORRHAGE [None]
